FAERS Safety Report 9175296 (Version 1)
Quarter: 2013Q1

REPORT INFORMATION
  Report Type: Spontaneous
  Country: RW (occurrence: RW)
  Receive Date: 20130320
  Receipt Date: 20130320
  Transmission Date: 20140127
  Serious: Yes (Hospitalization)
  Sender: FDA-Public Use
  Company Number: RW-UCBSA-080987

PATIENT
  Sex: Female
  Weight: 58 kg

DRUGS (2)
  1. KEPPRA [Suspect]
  2. NO CONCOMITANT MEDICATION [Concomitant]

REACTIONS (2)
  - Epilepsy [Unknown]
  - Drug administration error [Unknown]
